FAERS Safety Report 13880932 (Version 3)
Quarter: 2019Q4

REPORT INFORMATION
  Report Type: Report from Study
  Country: CO (occurrence: CO)
  Receive Date: 20170818
  Receipt Date: 20191209
  Transmission Date: 20200122
  Serious: Yes (Hospitalization, Other)
  Sender: FDA-Public Use
  Company Number: CO-BAYER-2017-153864

PATIENT
  Age: 54 Year
  Sex: Male

DRUGS (3)
  1. BETAFERON [Suspect]
     Active Substance: INTERFERON BETA-1B
     Indication: MULTIPLE SCLEROSIS
     Dosage: UNK
  2. ACETAMINOPHEN. [Concomitant]
     Active Substance: ACETAMINOPHEN
  3. BETAFERON [Suspect]
     Active Substance: INTERFERON BETA-1B
     Indication: MULTIPLE SCLEROSIS
     Dosage: 1 ML, QOD
     Route: 058
     Dates: start: 20160816, end: 20170729

REACTIONS (6)
  - Loss of consciousness [None]
  - Fall [Recovered/Resolved]
  - Periorbital haematoma [Recovering/Resolving]
  - Large intestine perforation [None]
  - Dizziness [Recovering/Resolving]
  - Chest injury [Recovering/Resolving]

NARRATIVE: CASE EVENT DATE: 20170727
